FAERS Safety Report 6322143-8 (Version None)
Quarter: 2009Q3

REPORT INFORMATION
  Report Type: 
  Country: None (occurrence: None)
  Receive Date: 20090821
  Receipt Date: 20090821
  Transmission Date: 20100115
  Serious: Yes (Disabling)
  Sender: FDA-Public Use
  Company Number: None

PATIENT
  Sex: Male
  Weight: 65.5 kg

DRUGS (1)
  1. FLONASE [Suspect]
     Indication: MULTIPLE ALLERGIES
     Dosage: 2 SPRAYS DAILY NASAL SPRAY
     Route: 045
     Dates: start: 20051018, end: 20051125

REACTIONS (7)
  - DRUG HYPERSENSITIVITY [None]
  - GLARE [None]
  - HALO VISION [None]
  - IMPAIRED DRIVING ABILITY [None]
  - NIGHT BLINDNESS [None]
  - PHOTOPHOBIA [None]
  - VISUAL IMPAIRMENT [None]
